FAERS Safety Report 7141173-X (Version None)
Quarter: 2010Q4

REPORT INFORMATION
  Report Type: 
  Country: None (occurrence: None)
  Receive Date: 20101122
  Receipt Date: 20101108
  Transmission Date: 20110411
  Serious: Yes (Other)
  Sender: FDA-Public Use
  Company Number: AUR-APL-2010-02826

PATIENT
  Age: 63 Year
  Sex: Female
  Weight: 83 kg

DRUGS (1)
  1. SIMVASTATIN [Suspect]
     Indication: HYPERCHOLESTEROLAEMIA
     Dosage: 20MG-DAILY-ORAL
     Route: 048
     Dates: start: 20100320

REACTIONS (4)
  - MUSCLE SPASMS [None]
  - ORAL PAIN [None]
  - OROPHARYNGEAL BLISTERING [None]
  - PAIN [None]
